FAERS Safety Report 15348676 (Version 3)
Quarter: 2018Q4

REPORT INFORMATION
  Report Type: Spontaneous
  Country: US (occurrence: US)
  Receive Date: 20180904
  Receipt Date: 20181003
  Transmission Date: 20190204
  Serious: No
  Sender: FDA-Public Use
  Company Number: US-ALKERMES INC.-ALK-2018-004553

PATIENT
  Age: 27 Year
  Sex: Female
  Weight: 51.25 kg

DRUGS (1)
  1. VIVITROL [Suspect]
     Active Substance: NALTREXONE
     Indication: ALCOHOLISM
     Dosage: 380 MG, QMO
     Route: 030
     Dates: start: 20171009

REACTIONS (3)
  - Underdose [Recovered/Resolved]
  - Needle issue [Recovered/Resolved]
  - Product storage error [Recovered/Resolved]
